FAERS Safety Report 9279669 (Version 1)
Quarter: 2013Q2

REPORT INFORMATION
  Report Type: Spontaneous
  Country: US (occurrence: US)
  Receive Date: 20130509
  Receipt Date: 20130509
  Transmission Date: 20140414
  Serious: No
  Sender: FDA-Public Use
  Company Number: US-009507513-1305USA001327

PATIENT
  Age: 27 Year
  Sex: Female

DRUGS (2)
  1. NUVARING [Suspect]
     Indication: CONTRACEPTION
     Dosage: 1 DF, UNK
     Route: 067
     Dates: start: 200805
  2. ZYRTEC [Concomitant]
     Dosage: UNK
     Dates: start: 201304

REACTIONS (2)
  - Abnormal withdrawal bleeding [Unknown]
  - Muscle spasms [Unknown]
